FAERS Safety Report 4618881-5 (Version None)
Quarter: 2005Q1

REPORT INFORMATION
  Report Type: 
  Country: None (occurrence: None)
  Receive Date: 20050323
  Receipt Date: 20050310
  Transmission Date: 20050727
  Serious: Yes (Other)
  Sender: FDA-Public Use
  Company Number: 2005040592

PATIENT
  Age: 93 Year
  Sex: Female
  Weight: 48.5349 kg

DRUGS (3)
  1. DETROL LA [Suspect]
     Indication: HYPERTONIC BLADDER
     Dosage: 4 MG (4 MG, 1 IN 1 D), ORAL
     Route: 048
     Dates: start: 20050201, end: 20050225
  2. ASPIRIN [Concomitant]
  3. ISOSORBIDE (ISOSORBIDE) [Concomitant]

REACTIONS (2)
  - DRUG INEFFECTIVE [None]
  - VAGINAL HAEMORRHAGE [None]
